FAERS Safety Report 14829635 (Version 2)
Quarter: 2018Q2

REPORT INFORMATION
  Report Type: Report from Study
  Country: BR (occurrence: BR)
  Receive Date: 20180430
  Receipt Date: 20180510
  Transmission Date: 20180711
  Serious: Yes (Death, Other)
  Sender: FDA-Public Use
  Company Number: PHHY2018BR075833

PATIENT
  Sex: Female
  Weight: 78 kg

DRUGS (7)
  1. FUROSEMIDE. [Concomitant]
     Active Substance: FUROSEMIDE
     Indication: PRODUCT USED FOR UNKNOWN INDICATION
     Dosage: 0.5 DF, EVERY 3 DAYS
     Route: 048
     Dates: start: 2007
  2. SPIRONOLACTONE. [Concomitant]
     Active Substance: SPIRONOLACTONE
     Indication: HYPERTENSION
     Dosage: 1 DF, QD
     Route: 048
     Dates: start: 2007
  3. PANTOPRAZOLE [Concomitant]
     Active Substance: PANTOPRAZOLE
     Indication: PROPHYLAXIS
     Dosage: 1 DF, QD
     Route: 048
     Dates: start: 2007
  4. RUSOVAS [Concomitant]
     Active Substance: ROSUVASTATIN
     Indication: BLOOD CHOLESTEROL INCREASED
     Dosage: 1 DF, QD
     Route: 048
     Dates: start: 2007
  5. CARVEDILOL. [Concomitant]
     Active Substance: CARVEDILOL
     Indication: CARDIAC FAILURE
     Dosage: 2 DF, QD
     Route: 048
     Dates: start: 2007
  6. PADRAX [Concomitant]
     Indication: ANTICOAGULANT THERAPY
     Dosage: 2 DF, QD
     Route: 048
     Dates: start: 2010
  7. ENTRESTO [Suspect]
     Active Substance: SACUBITRIL\VALSARTAN
     Indication: CARDIAC FAILURE
     Dosage: 2 TABLETS (97/103 MG), DAILY
     Route: 048

REACTIONS (2)
  - Cardiac arrest [Unknown]
  - Cardiac disorder [Fatal]
